FAERS Safety Report 5829237-1 (Version None)
Quarter: 2008Q3

REPORT INFORMATION
  Report Type: 
  Country: None (occurrence: None)
  Receive Date: 20080731
  Receipt Date: 20080724
  Transmission Date: 20090109
  Serious: Yes (Other)
  Sender: FDA-Public Use
  Company Number: DE-BOEHRINGER INGELHEIM GMBH, GERMANY-2008-BP-11615RO

PATIENT
  Age: 63 Year
  Sex: Female

DRUGS (13)
  1. METHOTREXATE [Suspect]
     Indication: RHEUMATOID ARTHRITIS
     Route: 048
     Dates: start: 19950101
  2. AZATHIOPRINE [Suspect]
     Indication: RHEUMATOID ARTHRITIS
  3. STEROIDS [Suspect]
  4. GOLD [Suspect]
     Indication: RHEUMATOID ARTHRITIS
  5. CHLOROQUINE PHOSPHATE [Suspect]
     Indication: RHEUMATOID ARTHRITIS
  6. SULFASALAZINE [Suspect]
     Indication: RHEUMATOID ARTHRITIS
  7. AMPHOTERICIN B [Concomitant]
     Indication: ASPERGILLOSIS
  8. AMPHOTERICIN B [Concomitant]
  9. VORICONAZOLE [Concomitant]
     Indication: ASPERGILLOSIS
     Route: 042
  10. VORICONAZOLE [Concomitant]
     Route: 048
  11. RITUXIMAB [Concomitant]
     Indication: ARTHRITIS
  12. NSAIDS [Concomitant]
     Indication: RHEUMATOID ARTHRITIS
  13. ANALGESICS [Concomitant]
     Indication: RHEUMATOID ARTHRITIS

REACTIONS (5)
  - ARTHRITIS [None]
  - ASPERGILLOSIS [None]
  - DRUG INEFFECTIVE [None]
  - RENAL IMPAIRMENT [None]
  - TUBERCULOSIS [None]
